FAERS Safety Report 8113012-1 (Version None)
Quarter: 2012Q1

REPORT INFORMATION
  Report Type: 
  Country: None (occurrence: None)
  Receive Date: 20120203
  Receipt Date: 20120123
  Transmission Date: 20120608
  Serious: Yes (Hospitalization)
  Sender: FDA-Public Use
  Company Number: US-ELI_LILLY_AND_COMPANY-US201201007820

PATIENT
  Sex: Female

DRUGS (15)
  1. FORTEO [Suspect]
     Indication: OSTEOPOROSIS
     Dosage: 20 UG, QD
     Dates: start: 20120101
  2. LASIX [Concomitant]
  3. TRAMADOL HCL [Concomitant]
     Indication: PAIN
     Dosage: UNK, PRN
  4. ASPIRIN [Concomitant]
     Dosage: UNK, QD
  5. COZAAR [Concomitant]
  6. COREG [Concomitant]
  7. STOOL SOFTENER [Concomitant]
     Dosage: UNK, PRN
  8. IBUPROFEN [Concomitant]
     Indication: PAIN
     Dosage: UNK, PRN
  9. LAXATIVES [Concomitant]
  10. SIMVASTATIN [Concomitant]
  11. TYLENOL (CAPLET) [Concomitant]
     Indication: PAIN
     Dosage: UNK, PRN
  12. MULTI-VITAMINS [Concomitant]
  13. NORVASC [Concomitant]
     Dosage: 2.5 MG, QD
  14. CLOBETASOL PROPIONATE [Concomitant]
     Indication: PSORIASIS
     Route: 061
  15. OYSTER SHELL CALCIUM [Concomitant]

REACTIONS (1)
  - CARDIAC FAILURE CONGESTIVE [None]
